FAERS Safety Report 8916022 (Version 1)
Quarter: 2012Q4

REPORT INFORMATION
  Report Type: Report from Study
  Country: JP (occurrence: JP)
  Receive Date: 20121119
  Receipt Date: 20121119
  Transmission Date: 20130627
  Serious: No
  Sender: FDA-Public Use
  Company Number: JP-VERTEX PHARMACEUTICAL INC.-AE-2012-008495

PATIENT
  Age: 59 Year
  Sex: Female

DRUGS (9)
  1. VX-950 (TELAPREVIR) [Suspect]
     Indication: HEPATITIS C
     Dosage: 2250 mg, qd
     Route: 048
     Dates: start: 20120413, end: 20120705
  2. RIBAVIRIN [Concomitant]
     Indication: CHRONIC HEPATITIS C
     Dosage: 600 mg, qd
     Route: 048
     Dates: start: 20120413, end: 20120628
  3. RIBAVIRIN [Concomitant]
     Dosage: 400 mg, qd
     Route: 048
     Dates: start: 20120629, end: 20120927
  4. PEGINTRON [Concomitant]
     Indication: CHRONIC HEPATITIS C
     Dosage: 1.3 ?g/kg, qw
     Route: 058
     Dates: start: 20120413, end: 20120921
  5. URSO [Concomitant]
     Route: 048
     Dates: end: 20120517
  6. REZALTAS [Concomitant]
     Dosage: 1 DF, qd
     Route: 048
     Dates: end: 20120416
  7. REZALTAS [Concomitant]
     Dosage: 1 DF, qd
     Route: 048
  8. LOXOPROFEN [Concomitant]
     Dosage: 1 DF, prn
     Route: 048
     Dates: start: 20120413
  9. URSODEOXYCHOLIC ACID [Concomitant]
     Dosage: 600 mg, qd
     Route: 048
     Dates: start: 20120518

REACTIONS (1)
  - Erythema [Recovered/Resolved]
